FAERS Safety Report 15104723 (Version 1)
Quarter: 2018Q3

REPORT INFORMATION
  Report Type: Spontaneous
  Country: AU (occurrence: AU)
  Receive Date: 20180703
  Receipt Date: 20180703
  Transmission Date: 20181010
  Serious: Yes (Other)
  Sender: FDA-Public Use
  Company Number: AU-SA-2018SA167313

PATIENT
  Age: 38 Year
  Sex: Male

DRUGS (14)
  1. VANDETANIB. [Suspect]
     Active Substance: VANDETANIB
     Indication: MEDULLARY THYROID CANCER
     Dosage: 300 MG, QD
     Route: 065
  2. KETOCONAZOLE. [Concomitant]
     Active Substance: KETOCONAZOLE
     Dosage: 200 MG, QD
     Route: 065
  3. PERINDOPRIL [Concomitant]
     Active Substance: PERINDOPRIL
     Indication: BLOOD PRESSURE MEASUREMENT
  4. METYRAPONE [Concomitant]
     Active Substance: METYRAPONE
     Dosage: 1500 UNK
     Route: 065
  5. KETOCONAZOLE. [Concomitant]
     Active Substance: KETOCONAZOLE
     Dosage: 200 MG, Q3D
     Route: 065
  6. MITOTANE [Concomitant]
     Active Substance: MITOTANE
     Dosage: 250 MG, QD
     Route: 065
  7. VANDETANIB. [Suspect]
     Active Substance: VANDETANIB
     Dosage: 100 MG, QD
     Route: 065
  8. KETOCONAZOLE. [Concomitant]
     Active Substance: KETOCONAZOLE
     Dosage: 200 MG
     Route: 065
  9. TELMISARTAN. [Concomitant]
     Active Substance: TELMISARTAN
     Indication: BLOOD PRESSURE MEASUREMENT
  10. METYRAPONE [Concomitant]
     Active Substance: METYRAPONE
     Dosage: 750 MG, QD
     Route: 065
  11. INDAPAMIDE. [Concomitant]
     Active Substance: INDAPAMIDE
     Indication: BLOOD PRESSURE MEASUREMENT
  12. METOPROLOL. [Concomitant]
     Active Substance: METOPROLOL
     Indication: BLOOD PRESSURE MEASUREMENT
  13. VANDETANIB. [Suspect]
     Active Substance: VANDETANIB
     Dosage: 200 MG, QD
     Route: 065
  14. MITOTANE [Concomitant]
     Active Substance: MITOTANE
     Dosage: 1 G, BID
     Route: 065

REACTIONS (5)
  - Bone marrow failure [Unknown]
  - Hepatotoxicity [Unknown]
  - Electrolyte imbalance [Unknown]
  - Embolism arterial [Unknown]
  - Cardiotoxicity [Unknown]
